FAERS Safety Report 22215889 (Version 8)
Quarter: 2024Q4

REPORT INFORMATION
  Report Type: Report from Study
  Country: FR (occurrence: FR)
  Receive Date: 20230417
  Receipt Date: 20241004
  Transmission Date: 20250115
  Serious: Yes (Death, Other)
  Sender: ABBVIE
  Company Number: FR-ABBVIE-4729428

PATIENT
  Age: 50 Year
  Sex: Female
  Weight: 62 kg

DRUGS (42)
  1. VENETOCLAX [Suspect]
     Active Substance: VENETOCLAX
     Indication: Chronic lymphocytic leukaemia
     Dosage: 20 MILLIGRAM
     Route: 048
     Dates: start: 20210729, end: 20210805
  2. VENETOCLAX [Suspect]
     Active Substance: VENETOCLAX
     Indication: Chronic lymphocytic leukaemia
     Dosage: 100 MILLIGRAM
     Route: 048
     Dates: start: 20210917, end: 20210923
  3. VENETOCLAX [Suspect]
     Active Substance: VENETOCLAX
     Indication: Chronic lymphocytic leukaemia
     Dosage: 200 MILLIGRAM
     Route: 048
     Dates: start: 20210924, end: 20210930
  4. VENETOCLAX [Suspect]
     Active Substance: VENETOCLAX
     Indication: Chronic lymphocytic leukaemia
     Dosage: 50 MILLIGRAM
     Route: 048
     Dates: start: 20210806, end: 20210916
  5. VENETOCLAX [Suspect]
     Active Substance: VENETOCLAX
     Indication: Chronic lymphocytic leukaemia
     Dosage: 400 MILLIGRAM
     Route: 048
     Dates: start: 20211001, end: 20230129
  6. EVUSHELD [Concomitant]
     Active Substance: CILGAVIMAB\TIXAGEVIMAB
     Indication: COVID-19
     Dates: start: 20220413, end: 20220413
  7. POLARAMINE [Concomitant]
     Active Substance: DEXCHLORPHENIRAMINE MALEATE
     Indication: Rash
     Dates: start: 20230203, end: 20230205
  8. IBUPROFEN [Concomitant]
     Active Substance: IBUPROFEN
     Indication: Back pain
     Dates: start: 20211110, end: 20211117
  9. OXAZEPAM [Concomitant]
     Active Substance: OXAZEPAM
     Indication: Anxiety
     Dates: start: 20230320
  10. ECONAZOLE [Concomitant]
     Active Substance: ECONAZOLE
     Indication: Rash
     Dates: start: 20230302, end: 20230303
  11. PAROXETINE [Concomitant]
     Active Substance: PAROXETINE
     Indication: Anxiety
     Dates: start: 202303
  12. FUROSEMIDE [Concomitant]
     Active Substance: FUROSEMIDE
     Indication: Oedema
     Dates: start: 20230218, end: 20230401
  13. FUROSEMIDE [Concomitant]
     Active Substance: FUROSEMIDE
     Indication: Oedema
     Dates: start: 20230209, end: 20230215
  14. VALIUM [Concomitant]
     Active Substance: DIAZEPAM
     Indication: Sedative therapy
     Dates: start: 20230401
  15. FASTURTEC [Concomitant]
     Active Substance: RASBURICASE
     Indication: Tumour lysis syndrome
     Dates: start: 20230202, end: 20230202
  16. LIDOCAINE [Concomitant]
     Active Substance: LIDOCAINE
     Indication: Oral herpes
     Dates: start: 20230201
  17. FENTANYL [Concomitant]
     Active Substance: FENTANYL
     Indication: Pain
     Dates: start: 20230324
  18. ONDANSETRON [Concomitant]
     Active Substance: ONDANSETRON
     Indication: Prophylaxis of nausea and vomiting
     Dates: start: 20230202, end: 20230221
  19. IMIPENEM [Concomitant]
     Active Substance: IMIPENEM
     Indication: Febrile bone marrow aplasia
     Dates: start: 20230212, end: 20230227
  20. TRAMADOL [Concomitant]
     Active Substance: TRAMADOL
     Indication: Oral herpes
     Dates: start: 20230201, end: 20230225
  21. ZOVIRAX [Concomitant]
     Active Substance: ACYCLOVIR
     Indication: Oral herpes
     Dates: start: 20230401
  22. DIPRIVAN [Concomitant]
     Active Substance: PROPOFOL
     Indication: Sedative therapy
     Dates: start: 20230306, end: 20230325
  23. NEFOPAM [Concomitant]
     Active Substance: NEFOPAM
     Indication: Oral herpes
     Dates: start: 20230209, end: 20230302
  24. APREPITANT [Concomitant]
     Active Substance: APREPITANT
     Indication: Prophylaxis of nausea and vomiting
     Dates: start: 20230202, end: 20230207
  25. VANCOMYCIN [Concomitant]
     Active Substance: VANCOMYCIN
     Indication: Staphylococcal infection
     Dates: start: 20230321, end: 20230322
  26. TIGECYCLINE [Concomitant]
     Active Substance: TIGECYCLINE
     Indication: Staphylococcal infection
     Dates: start: 20230403
  27. RETACRIT [Concomitant]
     Active Substance: EPOETIN ALFA-EPBX
     Indication: Anaemia
     Dates: start: 20230209
  28. ALLOPURINOL [Concomitant]
     Active Substance: ALLOPURINOL
     Indication: Tumour lysis syndrome
     Dates: start: 20230201, end: 20230207
  29. PIPERACILLIN SODIUM\TAZOBACTAM SODIUM [Concomitant]
     Active Substance: PIPERACILLIN SODIUM\TAZOBACTAM SODIUM
     Indication: Pneumonia escherichia
     Dates: start: 20230202, end: 20230205
  30. ACETAMINOPHEN [Concomitant]
     Active Substance: ACETAMINOPHEN
     Indication: Oral herpes
     Dates: start: 20230203, end: 20230206
  31. PANTOPRAZOLE [Concomitant]
     Active Substance: PANTOPRAZOLE
     Indication: Gastrooesophageal reflux prophylaxis
     Dates: start: 20230201
  32. AVIBACTAM SODIUM\CEFTAZIDIME [Concomitant]
     Active Substance: AVIBACTAM SODIUM\CEFTAZIDIME
     Indication: Staphylococcal infection
     Dates: start: 20230307, end: 20230403
  33. VORICONAZOLE [Concomitant]
     Active Substance: VORICONAZOLE
     Indication: Bronchopulmonary aspergillosis
     Dates: start: 20230227, end: 20230308
  34. SUFENTA [Concomitant]
     Active Substance: SUFENTANIL CITRATE
     Indication: Pain
     Dates: start: 20230306, end: 20230324
  35. ALBUTEROL [Concomitant]
     Active Substance: ALBUTEROL
     Indication: Pneumonia escherichia
     Dates: start: 20230203, end: 20230212
  36. VALACYCLOVIR HYDROCHLORIDE [Concomitant]
     Active Substance: VALACYCLOVIR HYDROCHLORIDE
     Indication: Oral herpes
     Dates: start: 20230203, end: 20230228
  37. TRANXENE [Concomitant]
     Active Substance: CLORAZEPATE DIPOTASSIUM
     Indication: Anxiety
     Dates: start: 20230204, end: 20230204
  38. NIMBEX [Concomitant]
     Active Substance: CISATRACURIUM BESYLATE
     Indication: Sedative therapy
     Dates: start: 20230307, end: 20230323
  39. LEVOMEPROMAZINE [Concomitant]
     Active Substance: LEVOMEPROMAZINE
     Indication: Anxiety
     Dates: start: 20230317
  40. ENOXAPARIN [Concomitant]
     Active Substance: ENOXAPARIN
     Indication: Anticoagulant therapy
     Dates: start: 20230202, end: 20230203
  41. SPIRAMYCIN [Concomitant]
     Active Substance: SPIRAMYCIN
     Indication: Stenotrophomonas infection
     Dates: start: 20230301, end: 20230302
  42. PRIMPERAN [Concomitant]
     Active Substance: METOCLOPRAMIDE HYDROCHLORIDE
     Indication: Prophylaxis of nausea and vomiting
     Dates: start: 20230202, end: 20230202

REACTIONS (28)
  - Respiratory distress [Fatal]
  - Lacrimation increased [Recovered/Resolved]
  - General physical health deterioration [Not Recovered/Not Resolved]
  - Staphylococcal infection [Recovered/Resolved]
  - Blood disorder [Fatal]
  - Thrombocytopenia [Not Recovered/Not Resolved]
  - Back pain [Recovered/Resolved]
  - Oral herpes [Recovered/Resolved]
  - Mucosal inflammation [Recovered/Resolved]
  - Nasopharyngitis [Recovered/Resolved]
  - Thrombocytopenia [Recovered/Resolved]
  - Blood disorder [Not Recovered/Not Resolved]
  - Bronchopulmonary aspergillosis [Not Recovered/Not Resolved]
  - Systemic candida [Recovered/Resolved]
  - Richter^s syndrome [Not Recovered/Not Resolved]
  - COVID-19 [Not Recovered/Not Resolved]
  - Stenotrophomonas infection [Not Recovered/Not Resolved]
  - Anxiety [Not Recovered/Not Resolved]
  - Nasopharyngitis [Recovered/Resolved]
  - Oedema [Recovered/Resolved]
  - Oral herpes [Not Recovered/Not Resolved]
  - Hepatic cytolysis [Recovered/Resolved]
  - Neutropenia [Not Recovered/Not Resolved]
  - Hyperkalaemia [Recovered/Resolved]
  - Pneumonia escherichia [Recovered/Resolved]
  - Rash [Recovered/Resolved]
  - Anaemia [Not Recovered/Not Resolved]
  - Tumour lysis syndrome [Recovered/Resolved]

NARRATIVE: CASE EVENT DATE: 20210701
